FAERS Safety Report 11516475 (Version 1)
Quarter: 2015Q3

REPORT INFORMATION
  Report Type: Spontaneous
  Country: US (occurrence: None)
  Receive Date: 20150915
  Receipt Date: 20150915
  Transmission Date: 20151125
  Serious: Yes (Hospitalization, Other)
  Sender: FDA-Public Use
  Company Number: 001981081A

PATIENT
  Age: 24 Year
  Sex: Female

DRUGS (4)
  1. X-OUT WASH-IN TREATMENT [Suspect]
     Active Substance: BENZOYL PEROXIDE
     Indication: ACNE
     Dosage: ONCE DERMAL
     Dates: start: 20150621
  2. X OUT SPOT CORRECTOR [Suspect]
     Active Substance: SULFUR
     Indication: ACNE
     Dosage: ONCE DERMAL
     Dates: start: 20150621
  3. X OUT CLEANSING BODY BAR [Suspect]
     Active Substance: SALICYLIC ACID
     Indication: ACNE
     Dosage: ONCE DERMAL
     Dates: start: 20150621
  4. X OUT DAILY BODY SCRUB [Suspect]
     Active Substance: SALICYLIC ACID
     Indication: ACNE
     Dosage: ONCE DERMAL
     Dates: start: 20150621

REACTIONS (4)
  - Urticaria [None]
  - Dyspnoea [None]
  - Overdose [None]
  - Anaphylactic reaction [None]

NARRATIVE: CASE EVENT DATE: 20150621
